FAERS Safety Report 8584618-0 (Version None)
Quarter: 2012Q3

REPORT INFORMATION
  Report Type: 
  Country: None (occurrence: None)
  Receive Date: 20120810
  Receipt Date: 20120731
  Transmission Date: 20120928
  Serious: Yes (Hospitalization)
  Sender: FDA-Public Use
  Company Number: US-BAYER-2010-002701

PATIENT
  Age: 35 Year
  Sex: Female

DRUGS (6)
  1. CLARITIN [Concomitant]
     Dosage: UNK UNK, PRN
     Dates: start: 20071022
  2. LEVOXYL [Concomitant]
     Dosage: 88 MG, UNK
     Dates: start: 20071022
  3. FLAXSEED OIL [Concomitant]
     Dosage: UNK
     Dates: start: 20070928
  4. MULTI-VITAMIN [Concomitant]
     Dosage: UNK
     Dates: start: 20071022
  5. CALCIUM +VIT D [Concomitant]
     Dosage: UNK
     Dates: start: 20070928
  6. YASMIN [Suspect]
     Indication: PREMENSTRUAL SYNDROME
     Dosage: UNK
     Dates: start: 20070901, end: 20071201

REACTIONS (3)
  - RENAL VEIN THROMBOSIS [None]
  - OVARIAN VEIN THROMBOSIS [None]
  - DEEP VEIN THROMBOSIS [None]
